FAERS Safety Report 24669865 (Version 1)
Quarter: 2024Q4

REPORT INFORMATION
  Report Type: Spontaneous
  Country: CN (occurrence: CN)
  Receive Date: 20241127
  Receipt Date: 20241127
  Transmission Date: 20250115
  Serious: Yes (Hospitalization)
  Sender: ROCHE
  Company Number: CN-BoehringerIngelheim-2024-BI-063136

PATIENT
  Age: 71 Year
  Sex: Male
  Weight: 50.0 kg

DRUGS (1)
  1. ALTEPLASE [Suspect]
     Active Substance: ALTEPLASE
     Indication: Cerebral infarction
     Route: 042
     Dates: start: 20241107, end: 20241107

REACTIONS (3)
  - Angioedema [Recovering/Resolving]
  - Tongue disorder [Recovering/Resolving]
  - Glossodynia [Recovering/Resolving]

NARRATIVE: CASE EVENT DATE: 20241107
